FAERS Safety Report 6583159-X (Version None)
Quarter: 2010Q1

REPORT INFORMATION
  Report Type: 
  Country: None (occurrence: None)
  Receive Date: 20100204
  Receipt Date: 20100120
  Transmission Date: 20100710
  Serious: Yes (Hospitalization)
  Sender: FDA-Public Use
  Company Number: 2010000096

PATIENT
  Age: 48 Year
  Sex: Female

DRUGS (3)
  1. ERLOTINIB HYDROCHLORIDE [Suspect]
     Indication: NEOPLASM
     Dosage: (QD), ORAL
     Route: 048
     Dates: start: 20091110
  2. GDC-0941 [Suspect]
     Indication: NEOPLASM
     Dosage: ORAL
     Route: 048
     Dates: start: 20091109, end: 20091116
  3. DICLOFENAC SODIUM [Concomitant]

REACTIONS (5)
  - COLITIS ULCERATIVE [None]
  - HYPOALBUMINAEMIA [None]
  - HYPONATRAEMIA [None]
  - LYMPHOPENIA [None]
  - MUCOSAL INFLAMMATION [None]
